FAERS Safety Report 5619808-X (Version None)
Quarter: 2008Q1

REPORT INFORMATION
  Report Type: 
  Country: None (occurrence: None)
  Receive Date: 20080208
  Receipt Date: 20080201
  Transmission Date: 20080703
  Serious: Yes (Hospitalization)
  Sender: FDA-Public Use
  Company Number: PHHO2007BE11902

PATIENT
  Age: 53 Year
  Sex: Female
  Weight: 66 kg

DRUGS (17)
  1. ULTRA-MG [Concomitant]
  2. PYRIDOXINE [Concomitant]
  3. CALCIUM CARBONATE [Concomitant]
  4. ALPHA [Concomitant]
  5. XANAX [Concomitant]
  6. CYA + STEROID FREE VS RAD + ERL [Suspect]
     Indication: RENAL TRANSPLANT
     Dosage: 1440 MG/DAY
     Route: 048
     Dates: start: 20070127
  7. MEDROL [Concomitant]
  8. NEORAL [Concomitant]
     Dosage: 85 MG, BID
     Dates: start: 20070503, end: 20070507
  9. BACTRIM [Concomitant]
  10. VALCYTE [Concomitant]
  11. PRAVASTATIN SODIUM [Concomitant]
  12. CARVEDILOL [Concomitant]
  13. COVERSYL [Concomitant]
  14. MOXONIDINE [Concomitant]
  15. NOVONORM [Concomitant]
  16. ZANTAC [Concomitant]
  17. FOLAVIT [Concomitant]

REACTIONS (2)
  - CHRONIC ALLOGRAFT NEPHROPATHY [None]
  - TRANSPLANT REJECTION [None]
